FAERS Safety Report 7701423-5 (Version None)
Quarter: 2011Q3

REPORT INFORMATION
  Report Type: 
  Country: None (occurrence: None)
  Receive Date: 20110822
  Receipt Date: 20110808
  Transmission Date: 20111222
  Serious: No
  Sender: FDA-Public Use
  Company Number: US-B.I. PHARMACEUTICALS,INC./RIDGEFIELD-2011-BP-19367BP

PATIENT
  Sex: Female

DRUGS (3)
  1. MIRTAZAPINE [Concomitant]
     Indication: SLEEP DISORDER
     Dosage: 30 MG
  2. ALPRAZOLAM [Concomitant]
     Indication: ANXIETY
     Dosage: 1 MG
  3. SPIRIVA [Suspect]
     Indication: BRONCHITIS
     Dosage: 18 MCG
     Route: 055
     Dates: start: 20040101

REACTIONS (5)
  - DIZZINESS [None]
  - OCULAR HYPERAEMIA [None]
  - EYE PAIN [None]
  - DIABETES MELLITUS [None]
  - BRONCHITIS [None]
